FAERS Safety Report 17889521 (Version 1)
Quarter: 2020Q2

REPORT INFORMATION
  Report Type: Spontaneous
  Country: US (occurrence: US)
  Receive Date: 20200611
  Receipt Date: 20200611
  Transmission Date: 20200714
  Serious: Yes (Hospitalization)
  Sender: FDA-Public Use
  Company Number: None

PATIENT
  Age: 63 Year
  Sex: Male

DRUGS (6)
  1. OMEPRAZOLE. [Concomitant]
     Active Substance: OMEPRAZOLE
     Dates: start: 20180202
  2. VITAMIN D3 [Concomitant]
     Active Substance: CHOLECALCIFEROL
     Dates: start: 20180202
  3. HUMIRA [Suspect]
     Active Substance: ADALIMUMAB
     Indication: PSORIASIS
     Route: 058
     Dates: start: 20150828
  4. BACL OFEN [Concomitant]
     Dates: start: 20180202
  5. SALSALATE. [Concomitant]
     Active Substance: SALSALATE
     Dates: start: 20180202
  6. VITAMIN B12 [Concomitant]
     Active Substance: CYANOCOBALAMIN
     Dates: start: 20180202

REACTIONS (3)
  - Hip surgery [None]
  - Therapy interrupted [None]
  - Bacterial infection [None]

NARRATIVE: CASE EVENT DATE: 20200601
